FAERS Safety Report 9156630 (Version 2)
Quarter: 2013Q2

REPORT INFORMATION
  Report Type: Report from Study
  Country: GB (occurrence: GB)
  Receive Date: 20130312
  Receipt Date: 20130522
  Transmission Date: 20140414
  Serious: Yes (Hospitalization)
  Sender: FDA-Public Use
  Company Number: GB-AMGEN-GBRCT2013015910

PATIENT
  Age: 53 Year
  Sex: Female

DRUGS (12)
  1. ETANERCEPT [Suspect]
     Indication: RHEUMATOID ARTHRITIS
     Dosage: 25 MG, 2X/WEEK
     Dates: start: 20041025, end: 20120420
  2. ETANERCEPT [Suspect]
     Dosage: 25 MG, 2X/WEEK
     Dates: start: 20120715
  3. METHOTREXATE [Concomitant]
     Dosage: UNK
  4. DIHYDROCODEINE [Concomitant]
     Dosage: UNK
  5. ACETYLSALICYLIC ACID [Concomitant]
     Dosage: UNK
  6. DETRUSITOL [Concomitant]
     Dosage: UNK
  7. PREDNISOLONE [Concomitant]
     Dosage: UNK
  8. TRAMADOL [Concomitant]
     Dosage: UNK
  9. LANSOPRAZOLE [Concomitant]
     Dosage: UNK
  10. FOLIC ACID [Concomitant]
     Dosage: UNK
  11. RAMIPRIL [Concomitant]
     Dosage: UNK
  12. BENDROFLUAZIDE [Concomitant]
     Dosage: UNK

REACTIONS (1)
  - Cholecystitis [Not Recovered/Not Resolved]
